FAERS Safety Report 8537561 (Version 2)
Quarter: 2012Q4

REPORT INFORMATION
  Report Type: 
  Country: US (occurrence: US)
  Receive Date: 20120501
  Receipt Date: 20121029
  Transmission Date: 20130627
  Serious: Yes (Death, Other)
  Sender: FDA-Public Use
  Company Number: US-PFIZER INC-2012104644

PATIENT
  Age: 55 Year
  Sex: Male

DRUGS (4)
  1. CHANTIX [Suspect]
     Indication: SMOKING CESSATION THERAPY
     Dosage: 1 mg, UNK
     Dates: start: 20091228, end: 20100417
  2. GLIPIZIDE [Concomitant]
     Indication: DIABETES
     Dosage: UNK
     Dates: start: 20080107, end: 20100417
  3. SIMVASTATIN [Concomitant]
     Indication: CHOLESTEROL
     Dosage: UNK
     Dates: start: 20080114, end: 20100417
  4. JANUMET [Concomitant]
     Indication: DIABETES
     Dosage: UNK
     Dates: start: 20080114, end: 20100417

REACTIONS (2)
  - Completed suicide [Fatal]
  - Anxiety [Unknown]
